FAERS Safety Report 9856393 (Version 1)
Quarter: 2014Q1

REPORT INFORMATION
  Report Type: Report from Study
  Country: US (occurrence: US)
  Receive Date: 20140130
  Receipt Date: 20140130
  Transmission Date: 20141002
  Serious: Yes (Death, Other)
  Sender: FDA-Public Use
  Company Number: US-ROXANE LABORATORIES, INC.-2014-BI-03600GD

PATIENT
  Age: 12 Year
  Sex: 0

DRUGS (1)
  1. CODEINE [Suspect]
     Indication: PROCEDURAL PAIN

REACTIONS (2)
  - Death [Fatal]
  - Unresponsive to stimuli [Unknown]
